FAERS Safety Report 9817536 (Version 3)
Quarter: 2014Q2

REPORT INFORMATION
  Report Type: Report from Study
  Country: JP (occurrence: JP)
  Receive Date: 20140115
  Receipt Date: 20140513
  Transmission Date: 20141212
  Serious: Yes (Death, Life-Threatening)
  Sender: FDA-Public Use
  Company Number: JP-ROCHE-1330762

PATIENT
  Age: 82 Year
  Sex: Male
  Weight: 64 kg

DRUGS (12)
  1. METHOXY POLYETHYLENE GLYCOL-EPOETIN BETA [Suspect]
     Indication: NEPHROGENIC ANAEMIA
     Route: 058
     Dates: start: 20121005, end: 20130201
  2. BAYASPIRIN [Suspect]
     Indication: PRODUCT USED FOR UNKNOWN INDICATION
     Route: 048
     Dates: end: 20130312
  3. PLAVIX [Suspect]
     Indication: PRODUCT USED FOR UNKNOWN INDICATION
     Route: 048
     Dates: end: 20130518
  4. ADALAT [Concomitant]
     Route: 048
     Dates: end: 20130312
  5. OLMETEC [Concomitant]
     Route: 048
     Dates: end: 20130412
  6. TAKEPRON [Concomitant]
     Route: 048
     Dates: end: 20130518
  7. KAYEXALATE [Concomitant]
     Route: 048
     Dates: end: 20130312
  8. CELECOX [Concomitant]
     Route: 048
     Dates: end: 20130312
  9. VITAMEDIN CAPSULES [Concomitant]
     Route: 048
     Dates: start: 20130201, end: 20130312
  10. ZYLORIC [Concomitant]
     Route: 048
     Dates: end: 20130312
  11. TEGRETOL [Concomitant]
     Route: 048
     Dates: end: 20130312
  12. ARTIST [Concomitant]
     Route: 048
     Dates: end: 20130424

REACTIONS (2)
  - Refractory cytopenia with unilineage dysplasia [Not Recovered/Not Resolved]
  - Subdural haematoma [Fatal]
